FAERS Safety Report 13228559 (Version 1)
Quarter: 2017Q1

REPORT INFORMATION
  Report Type: Spontaneous
  Country: US (occurrence: US)
  Receive Date: 20170213
  Receipt Date: 20170213
  Transmission Date: 20170428
  Serious: No
  Sender: FDA-Public Use
  Company Number: US-ROCHE-1840543

PATIENT
  Sex: Female
  Weight: 71.28 kg

DRUGS (5)
  1. XOLAIR [Suspect]
     Active Substance: OMALIZUMAB
     Indication: IDIOPATHIC URTICARIA
     Route: 058
     Dates: start: 20160712, end: 20160907
  2. AZELASTINE [Concomitant]
     Active Substance: AZELASTINE
  3. PROAIR HFA [Concomitant]
     Active Substance: ALBUTEROL SULFATE
  4. NASONEX [Concomitant]
     Active Substance: MOMETASONE FUROATE
  5. SINGULAIR [Concomitant]
     Active Substance: MONTELUKAST SODIUM

REACTIONS (2)
  - Emotional disorder [Unknown]
  - Anxiety [Recovered/Resolved]
